FAERS Safety Report 5779785-8 (Version None)
Quarter: 2008Q2

REPORT INFORMATION
  Report Type: 
  Country: None (occurrence: None)
  Receive Date: 20080618
  Receipt Date: 20080602
  Transmission Date: 20081010
  Serious: Yes (Hospitalization)
  Sender: FDA-Public Use
  Company Number: 2008BI014174

PATIENT
  Age: 17 Year
  Sex: Male

DRUGS (2)
  1. AVONEX [Suspect]
     Indication: RELAPSING-REMITTING MULTIPLE SCLEROSIS
     Dosage: 30 US;QW;IM
     Route: 030
     Dates: start: 20000901, end: 20010101
  2. METHYLPREDNISOLONE [Concomitant]

REACTIONS (12)
  - ABNORMAL BEHAVIOUR [None]
  - APHASIA [None]
  - CRANIAL NERVE PALSIES MULTIPLE [None]
  - DIPLOPIA [None]
  - MARBURG'S VARIANT MULTIPLE SCLEROSIS [None]
  - MULTIPLE SCLEROSIS RELAPSE [None]
  - NERVOUS SYSTEM DISORDER [None]
  - NUCLEAR MAGNETIC RESONANCE IMAGING BRAIN ABNORMAL [None]
  - NYSTAGMUS [None]
  - OPHTHALMOPLEGIA [None]
  - STEM CELL TRANSPLANT [None]
  - VIITH NERVE PARALYSIS [None]
